FAERS Safety Report 16702936 (Version 1)
Quarter: 2019Q3

REPORT INFORMATION
  Report Type: Spontaneous
  Country: US (occurrence: US)
  Receive Date: 20190628
  Receipt Date: 20190628
  Transmission Date: 20191004
  Serious: No
  Sender: FDA-Public Use
  Company Number: None

PATIENT
  Age: 70 Year
  Sex: Male

DRUGS (1)
  1. ENBREL [Suspect]
     Active Substance: ETANERCEPT
     Dates: start: 201704

REACTIONS (4)
  - Incorrect dose administered [None]
  - Incorrect drug administration rate [None]
  - Device malfunction [None]
  - Arthritis [None]

NARRATIVE: CASE EVENT DATE: 20190628
